FAERS Safety Report 16239371 (Version 1)
Quarter: 2019Q2

REPORT INFORMATION
  Report Type: Report from Study
  Country: US (occurrence: US)
  Receive Date: 20190425
  Receipt Date: 20190425
  Transmission Date: 20190711
  Serious: Yes (Other)
  Sender: FDA-Public Use
  Company Number: PHHY2018US008924

PATIENT
  Age: 60 Year
  Sex: Female

DRUGS (1)
  1. GILENYA [Suspect]
     Active Substance: FINGOLIMOD HYDROCHLORIDE
     Indication: MULTIPLE SCLEROSIS
     Dosage: UNK UNK, QD
     Route: 048

REACTIONS (11)
  - White blood cell count decreased [Unknown]
  - Upper respiratory tract infection [Recovered/Resolved]
  - Lymphocyte count decreased [Unknown]
  - Breast cyst [Unknown]
  - Basal cell carcinoma [Recovered/Resolved]
  - Blood alkaline phosphatase increased [Unknown]
  - Actinic keratosis [Recovered/Resolved]
  - Musculoskeletal pain [Unknown]
  - Bronchitis [Unknown]
  - Varices oesophageal [Not Recovered/Not Resolved]
  - Seborrhoeic keratosis [Unknown]

NARRATIVE: CASE EVENT DATE: 20170412
